FAERS Safety Report 21284613 (Version 2)
Quarter: 2022Q4

REPORT INFORMATION
  Report Type: Spontaneous
  Country: US (occurrence: US)
  Receive Date: 20220902
  Receipt Date: 20221019
  Transmission Date: 20230113
  Serious: Yes (Disabling, Other)
  Sender: FDA-Public Use
  Company Number: US-ALIMERA SCIENCES INC.-US-A16013-22-000219

PATIENT
  Sex: Female

DRUGS (1)
  1. ILUVIEN [Suspect]
     Active Substance: FLUOCINOLONE ACETONIDE
     Indication: Product used for unknown indication
     Dosage: 0.25 MICROGRAM, QD -UNKNOWN EYE
     Route: 031

REACTIONS (4)
  - Blindness [Unknown]
  - Vitreous haemorrhage [Unknown]
  - Impaired work ability [Unknown]
  - Needle issue [Unknown]
